FAERS Safety Report 19631734 (Version 1)
Quarter: 2021Q3

REPORT INFORMATION
  Report Type: Spontaneous
  Country: US (occurrence: US)
  Receive Date: 20210729
  Receipt Date: 20210729
  Transmission Date: 20211014
  Serious: No
  Sender: FDA-Public Use
  Company Number: US-MYLANLABS-2021M1042538

PATIENT
  Sex: Female
  Weight: 100 kg

DRUGS (1)
  1. ESTRADIOL. [Suspect]
     Active Substance: ESTRADIOL
     Indication: ARTIFICIAL MENOPAUSE
     Dosage: UNK
     Route: 067

REACTIONS (2)
  - Drug ineffective [Unknown]
  - Off label use [Unknown]
